FAERS Safety Report 23923500 (Version 1)
Quarter: 2024Q2

REPORT INFORMATION
  Report Type: Spontaneous
  Country: MX (occurrence: MX)
  Receive Date: 20240531
  Receipt Date: 20240531
  Transmission Date: 20240716
  Serious: Yes (Death, Hospitalization)
  Sender: FDA-Public Use
  Company Number: MX-JNJFOC-20240585150

PATIENT
  Age: 44 Year
  Sex: Male

DRUGS (3)
  1. TREMFYA [Suspect]
     Active Substance: GUSELKUMAB
     Indication: Psoriasis
     Route: 065
  2. TREMFYA [Suspect]
     Active Substance: GUSELKUMAB
  3. TREMFYA [Suspect]
     Active Substance: GUSELKUMAB

REACTIONS (8)
  - Diarrhoea [Fatal]
  - Vomiting [Fatal]
  - Pain [Fatal]
  - Fall [Fatal]
  - Confusional state [Fatal]
  - Hallucination, visual [Fatal]
  - Pyrexia [Fatal]
  - Chills [Fatal]

NARRATIVE: CASE EVENT DATE: 20240510
